FAERS Safety Report 9357967 (Version 1)
Quarter: 2013Q2

REPORT INFORMATION
  Report Type: Spontaneous
  Country: DK (occurrence: DK)
  Receive Date: 20130620
  Receipt Date: 20130620
  Transmission Date: 20140414
  Serious: Yes (Disabling)
  Sender: FDA-Public Use
  Company Number: DK-SANOFI-AVENTIS-2012SA064114

PATIENT
  Sex: Female

DRUGS (7)
  1. TAXOTERE [Suspect]
     Indication: BREAST CANCER
     Route: 042
     Dates: start: 20120710, end: 20120710
  2. TAXOTERE [Suspect]
     Indication: BREAST CANCER
     Route: 042
     Dates: start: 20120801, end: 20120801
  3. TAXOTERE [Suspect]
     Indication: BREAST CANCER
     Route: 042
     Dates: start: 20120914, end: 20120914
  4. TAXOTERE [Suspect]
     Indication: BREAST CANCER
     Route: 042
     Dates: start: 20120824, end: 20120824
  5. CYCLOPHOSPHAMIDE [Concomitant]
     Indication: BREAST CANCER
     Dosage: EVERY 3 WEEKS X 4
     Route: 042
     Dates: start: 2012, end: 2012
  6. EPIRUBICIN [Concomitant]
     Indication: BREAST CANCER
     Dosage: EVERY 3 WEEKS X 4
     Route: 042
     Dates: start: 2012, end: 2012
  7. ANTACIDS [Concomitant]
     Indication: GASTROOESOPHAGEAL REFLUX DISEASE

REACTIONS (8)
  - Memory impairment [Unknown]
  - Oral fungal infection [Recovered/Resolved]
  - Dysgeusia [Recovered/Resolved]
  - Dysgeusia [Unknown]
  - Diarrhoea [Recovered/Resolved]
  - Syncope [Recovered/Resolved]
  - Sensory disturbance [Recovering/Resolving]
  - Parosmia [Recovered/Resolved]
